FAERS Safety Report 11862424 (Version 1)
Quarter: 2015Q4

REPORT INFORMATION
  Report Type: Spontaneous
  Country: US (occurrence: None)
  Receive Date: 20151222
  Receipt Date: 20151222
  Transmission Date: 20160305
  Serious: Yes (Life-Threatening, Hospitalization)
  Sender: FDA-Public Use
  Company Number: None

PATIENT
  Age: 82 Year
  Sex: Male
  Weight: 90.72 kg

DRUGS (7)
  1. GADAVIST [Suspect]
     Active Substance: GADOBUTROL
     Indication: NUCLEAR MAGNETIC RESONANCE IMAGING BRAIN
     Dosage: 1 DOSE
     Route: 042
     Dates: start: 20151119, end: 20151119
  2. ASPIRIN. [Concomitant]
     Active Substance: ASPIRIN
  3. NORTRIPTYLINE [Concomitant]
     Active Substance: NORTRIPTYLINE
  4. OMEPRAZOLE. [Concomitant]
     Active Substance: OMEPRAZOLE
  5. METROPROLOL TARTRATE [Concomitant]
     Active Substance: METOPROLOL TARTRATE
  6. SYMBICORT [Concomitant]
     Active Substance: BUDESONIDE\FORMOTEROL FUMARATE DIHYDRATE
  7. ALBUTEROL SULFATE. [Concomitant]
     Active Substance: ALBUTEROL SULFATE

REACTIONS (5)
  - Unresponsive to stimuli [None]
  - Foaming at mouth [None]
  - Communication disorder [None]
  - Cyanosis [None]
  - Heart rate decreased [None]

NARRATIVE: CASE EVENT DATE: 20151119
